FAERS Safety Report 8818637 (Version 2)
Quarter: 2014Q3

REPORT INFORMATION
  Report Type: Report from Study
  Country: US (occurrence: US)
  Receive Date: 20121001
  Receipt Date: 20140911
  Transmission Date: 20150326
  Serious: Yes (Death, Other)
  Sender: FDA-Public Use
  Company Number: US-ROCHE-1130100

PATIENT
  Sex: Male

DRUGS (4)
  1. TRASTUZUMAB [Suspect]
     Active Substance: TRASTUZUMAB
     Indication: BREAST CANCER
     Route: 065
     Dates: start: 19981012
  2. MS CONTIN [Concomitant]
     Active Substance: MORPHINE SULFATE
  3. TRASTUZUMAB [Suspect]
     Active Substance: TRASTUZUMAB
     Route: 065
  4. AREDIA [Concomitant]
     Active Substance: PAMIDRONATE DISODIUM
     Route: 065

REACTIONS (4)
  - Atelectasis [Unknown]
  - Pleural effusion [Unknown]
  - Rib fracture [Unknown]
  - Death [Fatal]
